FAERS Safety Report 6227986-7 (Version None)
Quarter: 2009Q2

REPORT INFORMATION
  Report Type: 
  Country: None (occurrence: None)
  Receive Date: 20090611
  Receipt Date: 20090606
  Transmission Date: 20091009
  Serious: Yes (Death)
  Sender: FDA-Public Use
  Company Number: US-GENENTECH-284030

PATIENT
  Sex: Male
  Weight: 108.9 kg

DRUGS (23)
  1. RANIBIZUMAB [Suspect]
     Indication: DIABETIC RETINAL OEDEMA
     Dosage: UNK MG, 1/MONTH
     Route: 031
     Dates: start: 20071010, end: 20090429
  2. TRICOR [Concomitant]
     Indication: HYPERLIPIDAEMIA
     Dosage: 145 MG, UNK
     Dates: start: 20070905
  3. SIMVASTATIN [Concomitant]
     Indication: HYPERLIPIDAEMIA
     Dosage: 20 MG, UNK
     Dates: start: 20070214
  4. METOPROLOL SUCCINATE [Concomitant]
     Indication: HYPERTENSION
     Dosage: 50 MG, UNK
     Dates: start: 20070214
  5. LISINOPRIL [Concomitant]
     Indication: HYPERTENSION
     Dosage: 40 MG, UNK
     Dates: start: 20021114
  6. SPIRONOLACTONE [Concomitant]
     Indication: CARDIAC FAILURE CONGESTIVE
     Dosage: 25 MG, UNK
     Dates: start: 20070905
  7. LYRICA [Concomitant]
     Indication: DIABETIC NEUROPATHY
     Dosage: 75 MG, UNK
     Dates: start: 20070905
  8. FISH OIL CONCENTRATE [Concomitant]
     Indication: HYPERLIPIDAEMIA
     Dosage: 1000 MG, UNK
     Dates: start: 20070905
  9. PACERONE [Concomitant]
     Indication: ARRHYTHMIA
     Dosage: 200 MG, UNK
     Dates: start: 20070905
  10. WARFARIN SODIUM [Concomitant]
     Indication: CARDIOVASCULAR EVENT PROPHYLAXIS
     Dosage: 5 MG, UNK
     Dates: start: 20070905
  11. WARFARIN SODIUM [Concomitant]
     Dosage: 2 MG, UNK
     Dates: start: 20070905
  12. HUMALOG [Concomitant]
     Indication: DIABETES MELLITUS
     Dosage: UNK
     Dates: start: 20070905
  13. LANTISEPTIC CREAM [Concomitant]
     Indication: DIABETES MELLITUS
     Dosage: 60 MG, UNK
     Dates: start: 20070905
  14. COSOPT [Concomitant]
     Indication: GLAUCOMA
     Dosage: UNK
     Dates: start: 20040520, end: 20081128
  15. TRAVATAN [Concomitant]
     Indication: GLAUCOMA
     Dosage: UNK
     Dates: start: 20070905
  16. ALPHAGAN [Concomitant]
     Indication: GLAUCOMA
     Dosage: UNK
     Dates: start: 20041206
  17. ASPIRIN [Concomitant]
     Indication: CARDIOVASCULAR EVENT PROPHYLAXIS
     Dosage: 1325 MG, UNK
     Dates: start: 20021114
  18. ZETIA [Concomitant]
     Indication: HYPERLIPIDAEMIA
     Dosage: 10 MG, UNK
     Dates: start: 20071016
  19. METFORMIN HYDROCHLORIDE [Concomitant]
     Indication: DIABETES MELLITUS
     Dosage: 100 MG, UNK
     Dates: start: 20021114
  20. COENZYME Q10 [Concomitant]
     Indication: CARDIAC FAILURE CONGESTIVE
     Dosage: UNK
     Dates: start: 20081030
  21. ALPHA LIPOIC ACID [Concomitant]
     Indication: DIABETIC NEUROPATHY
     Dosage: UNK
     Dates: start: 20081030
  22. ANTARA (MICRONIZED) [Concomitant]
     Indication: HYPERLIPIDAEMIA
     Dosage: UNK
     Dates: start: 20080625
  23. TIMOLOL MALEATE [Concomitant]
     Indication: GLAUCOMA
     Dosage: UNK
     Dates: start: 20081128

REACTIONS (1)
  - CORONARY ARTERY DISEASE [None]
